FAERS Safety Report 9177277 (Version 4)
Quarter: 2013Q3

REPORT INFORMATION
  Report Type: Report from Study
  Country: CH (occurrence: CH)
  Receive Date: 20130321
  Receipt Date: 20130712
  Transmission Date: 20140515
  Serious: Yes (Other)
  Sender: FDA-Public Use
  Company Number: CH-ASTELLAS-2013US002977

PATIENT
  Sex: 0

DRUGS (3)
  1. ERLOTINIB TABLET [Suspect]
     Indication: LUNG NEOPLASM MALIGNANT
     Dosage: 150 MG, UID/QD
     Route: 048
     Dates: start: 20120619, end: 20130415
  2. BEVACIZUMAB [Suspect]
     Indication: LUNG NEOPLASM MALIGNANT
     Dosage: 15 MG/KG, Q3W
     Route: 042
     Dates: start: 20120619, end: 20130415
  3. MARCOUMAR [Concomitant]
     Indication: PRODUCT USED FOR UNKNOWN INDICATION
     Dosage: UNK
     Route: 048
     Dates: start: 20130415

REACTIONS (1)
  - Embolism [Recovering/Resolving]
